FAERS Safety Report 21835333 (Version 2)
Quarter: 2023Q1

REPORT INFORMATION
  Report Type: Spontaneous
  Country: US (occurrence: US)
  Receive Date: 20230109
  Receipt Date: 20230116
  Transmission Date: 20230417
  Serious: No
  Sender: FDA-Public Use
  Company Number: US-SA-SAC20230106000172

PATIENT
  Age: 54 Year
  Sex: Female
  Weight: 89.35 kg

DRUGS (42)
  1. DUPIXENT [Suspect]
     Active Substance: DUPILUMAB
     Indication: Nasal polyps
     Dosage: 300 MG, QOW
     Route: 058
     Dates: start: 20220215
  2. ZINC [Concomitant]
     Active Substance: ZINC
  3. CALCIUM [Concomitant]
     Active Substance: CALCIUM
  4. NEXIUM I.V. [Concomitant]
     Active Substance: ESOMEPRAZOLE SODIUM
  5. TRULICITY [Concomitant]
     Active Substance: DULAGLUTIDE
  6. CLOBETASOL PROPIONATE [Concomitant]
     Active Substance: CLOBETASOL PROPIONATE
  7. TYLENOL [Concomitant]
     Active Substance: ACETAMINOPHEN
  8. FISH OIL [Concomitant]
     Active Substance: FISH OIL
  9. PROTOPIC [Concomitant]
     Active Substance: TACROLIMUS
  10. LIDOCAINE [Concomitant]
     Active Substance: LIDOCAINE
  11. VITAMIN B12 [Concomitant]
     Active Substance: CYANOCOBALAMIN
  12. MELATONIN [Concomitant]
     Active Substance: MELATONIN
  13. MUPIROCIN [Concomitant]
     Active Substance: MUPIROCIN
  14. VITAMIN D3 [Concomitant]
     Active Substance: CHOLECALCIFEROL
  15. VITAMIN D3 [Concomitant]
     Active Substance: CHOLECALCIFEROL
  16. HYDROCORTISONE [Concomitant]
     Active Substance: HYDROCORTISONE
  17. HYDROCORTISONE [Concomitant]
     Active Substance: HYDROCORTISONE
  18. CHONDROITIN SULFATE (BOVINE)\GLUCOSAMINE HYDROCHLORIDE [Concomitant]
     Active Substance: CHONDROITIN SULFATE (BOVINE)\GLUCOSAMINE HYDROCHLORIDE
  19. IBUPROFEN [Concomitant]
     Active Substance: IBUPROFEN
  20. PENTOXIFYLLINE [Concomitant]
     Active Substance: PENTOXIFYLLINE
  21. PENTOXIFYLLINE [Concomitant]
     Active Substance: PENTOXIFYLLINE
  22. ROSUVASTATIN CALCIUM [Concomitant]
     Active Substance: ROSUVASTATIN CALCIUM
  23. ROSUVASTATIN CALCIUM [Concomitant]
     Active Substance: ROSUVASTATIN CALCIUM
  24. METFORMIN HYDROCHLORIDE [Concomitant]
     Active Substance: METFORMIN HYDROCHLORIDE
  25. HYDROCHLOROTHIAZIDE\LISINOPRIL [Concomitant]
     Active Substance: HYDROCHLOROTHIAZIDE\LISINOPRIL
  26. GABAPENTIN [Concomitant]
     Active Substance: GABAPENTIN
  27. FLONASE ALLERGY RELIEF [Concomitant]
     Active Substance: FLUTICASONE PROPIONATE
  28. GABAPENTIN [Concomitant]
     Active Substance: GABAPENTIN
  29. SYNTHROID [Concomitant]
     Active Substance: LEVOTHYROXINE SODIUM
  30. VOLTAREN ARTHRITIS PAIN [Concomitant]
     Active Substance: DICLOFENAC SODIUM
  31. ALBUTEROL SULFATE [Concomitant]
     Active Substance: ALBUTEROL SULFATE
  32. ZOLOFT [Concomitant]
     Active Substance: SERTRALINE HYDROCHLORIDE
  33. ZYRTEC [Concomitant]
     Active Substance: CETIRIZINE HYDROCHLORIDE
  34. SINGULAIR [Concomitant]
     Active Substance: MONTELUKAST SODIUM
  35. FLUAD QUAD [Concomitant]
  36. HERBALS\TURMERIC [Concomitant]
     Active Substance: HERBALS\TURMERIC
  37. MAGNESIUM [Concomitant]
     Active Substance: MAGNESIUM
  38. VITAMINS NOS [Concomitant]
     Active Substance: VITAMINS
  39. CHONDROITIN;GLUCOSAMINE [Concomitant]
  40. METFORMIN [Concomitant]
     Active Substance: METFORMIN HYDROCHLORIDE
  41. HYDROCHLOROTHIAZIDE\LISINOPRIL [Concomitant]
     Active Substance: HYDROCHLOROTHIAZIDE\LISINOPRIL
  42. HERBALS\TURMERIC [Concomitant]
     Active Substance: HERBALS\TURMERIC

REACTIONS (5)
  - Sinus disorder [Not Recovered/Not Resolved]
  - Sinusitis [Unknown]
  - Drainage [Unknown]
  - Ear discomfort [Unknown]
  - Ear disorder [Unknown]

NARRATIVE: CASE EVENT DATE: 20221231
